FAERS Safety Report 5485516-1 (Version None)
Quarter: 2007Q4

REPORT INFORMATION
  Report Type: 
  Country: None (occurrence: None)
  Receive Date: 20071010
  Receipt Date: 20071010
  Transmission Date: 20080405
  Serious: Yes (Other)
  Sender: FDA-Public Use
  Company Number: None

PATIENT
  Sex: Female
  Weight: 86.1834 kg

DRUGS (1)
  1. BENICAR HCT [Suspect]
     Indication: HYPERTENSION
     Dosage: 20    1 PER DAY  PO
     Route: 048
     Dates: start: 20060815, end: 20070515

REACTIONS (2)
  - NERVE INJURY [None]
  - PAIN IN EXTREMITY [None]
